FAERS Safety Report 8038738-X (Version None)
Quarter: 2012Q1

REPORT INFORMATION
  Report Type: 
  Country: None (occurrence: None)
  Receive Date: 20120111
  Receipt Date: 20111205
  Transmission Date: 20120608
  Serious: No
  Sender: FDA-Public Use
  Company Number: US-AMGEN-USASP2011064592

PATIENT
  Age: 41 Year
  Sex: Female

DRUGS (1)
  1. ENBREL [Suspect]
     Indication: RHEUMATOID ARTHRITIS
     Dosage: 50 MG, QWK
     Dates: start: 20110808

REACTIONS (8)
  - TOOTHACHE [None]
  - ABDOMINAL PAIN [None]
  - WOUND INFECTION STAPHYLOCOCCAL [None]
  - NAUSEA [None]
  - VOMITING [None]
  - DYSPNOEA [None]
  - DIARRHOEA [None]
  - SINUSITIS [None]
